FAERS Safety Report 9900908 (Version 1)
Quarter: 2014Q1

REPORT INFORMATION
  Report Type: Spontaneous
  Country: US (occurrence: US)
  Receive Date: 20140217
  Receipt Date: 20140217
  Transmission Date: 20141002
  Serious: No
  Sender: FDA-Public Use
  Company Number: US-ABBVIE-13P-163-1070075-00

PATIENT
  Age: 44 Year
  Sex: Male
  Weight: 90.8 kg

DRUGS (3)
  1. SIMCOR 1000/40 [Suspect]
     Indication: HIGH DENSITY LIPOPROTEIN DECREASED
     Dosage: 1000/40MG
     Route: 048
     Dates: start: 2011
  2. SIMCOR 1000/40 [Suspect]
     Indication: LOW DENSITY LIPOPROTEIN INCREASED
  3. ASPIRIN [Concomitant]
     Indication: PROPHYLAXIS

REACTIONS (1)
  - Drug ineffective [Not Recovered/Not Resolved]
